FAERS Safety Report 17728270 (Version 3)
Quarter: 2022Q2

REPORT INFORMATION
  Report Type: Report from Study
  Country: US (occurrence: US)
  Receive Date: 20200430
  Receipt Date: 20220405
  Transmission Date: 20220721
  Serious: Yes (Other)
  Sender: FDA-Public Use
  Company Number: US-BIOGEN-2020BI00867903

PATIENT
  Sex: Female

DRUGS (1)
  1. TYSABRI [Suspect]
     Active Substance: NATALIZUMAB
     Indication: Multiple sclerosis
     Route: 065
     Dates: start: 20171016

REACTIONS (3)
  - Spinal compression fracture [Unknown]
  - Spinal osteoarthritis [Unknown]
  - Dysphonia [Unknown]
